FAERS Safety Report 16516390 (Version 1)
Quarter: 2019Q3

REPORT INFORMATION
  Report Type: Spontaneous
  Country: US (occurrence: US)
  Receive Date: 20190702
  Receipt Date: 20190702
  Transmission Date: 20191004
  Serious: No
  Sender: FDA-Public Use
  Company Number: US-PFM-2018-14668

PATIENT

DRUGS (1)
  1. HEMANGEOL [Suspect]
     Active Substance: PROPRANOLOL HYDROCHLORIDE
     Indication: HAEMANGIOMA
     Dosage: 3.8 ML, BID (2/DAY) AFTER FEEDING
     Route: 048
     Dates: start: 201801

REACTIONS (3)
  - Product use issue [Unknown]
  - Off label use [Unknown]
  - Adverse event [Unknown]
